FAERS Safety Report 9720742 (Version 1)
Quarter: 2013Q4

REPORT INFORMATION
  Report Type: Report from Study
  Country: BR (occurrence: BR)
  Receive Date: 20131129
  Receipt Date: 20131129
  Transmission Date: 20140711
  Serious: Yes (Other)
  Sender: FDA-Public Use
  Company Number: PHHY2013BR138005

PATIENT
  Sex: Female
  Weight: 37.5 kg

DRUGS (9)
  1. ACLASTA [Suspect]
     Indication: OSTEOPOROSIS
     Dosage: 5 MG, UNK
     Route: 042
     Dates: start: 200908
  2. ACLASTA [Suspect]
     Dosage: 4 MG, EVERY 10 MONTHS
     Route: 042
     Dates: start: 2010
  3. ACLASTA [Suspect]
     Dosage: 4 MG, EVERY 10 MONTHS
     Route: 042
     Dates: start: 2011
  4. ACLASTA [Suspect]
     Dosage: 5 MG, UNK
     Route: 042
     Dates: start: 2012
  5. PREDNISOLONE [Concomitant]
     Dosage: UNK UKN, UNK
     Dates: start: 1987
  6. OMEPRAZOLE [Concomitant]
     Dosage: UNK UKN, UNK
     Dates: start: 1998
  7. PROPANOLOL [Concomitant]
     Dosage: UNK UKN, UNK
     Dates: start: 1998
  8. CELEBRA [Concomitant]
     Dosage: UNK UKN, UNK
     Dates: start: 2001
  9. CALTRATE [Concomitant]
     Dosage: UNK UKN, UNK

REACTIONS (4)
  - Hypersensitivity vasculitis [Recovered/Resolved]
  - Pruritus [Recovered/Resolved]
  - Inappropriate schedule of drug administration [Unknown]
  - Incorrect dose administered [Unknown]
